FAERS Safety Report 6833994-5 (Version None)
Quarter: 2010Q3

REPORT INFORMATION
  Report Type: 
  Country: None (occurrence: None)
  Receive Date: 20100712
  Receipt Date: 20070407
  Transmission Date: 20110219
  Serious: No
  Sender: FDA-Public Use
  Company Number: US-PFIZER INC-2007028210

PATIENT
  Sex: Male
  Weight: 69.85 kg

DRUGS (4)
  1. CHANTIX [Suspect]
     Indication: SMOKING CESSATION THERAPY
     Route: 048
     Dates: start: 20070330
  2. VITAMINS [Concomitant]
     Dates: end: 20070330
  3. ACETYLSALICYLIC ACID [Concomitant]
     Dates: end: 20070330
  4. MOTRIN [Concomitant]
     Dates: end: 20070330

REACTIONS (5)
  - ABNORMAL DREAMS [None]
  - ANXIETY [None]
  - FATIGUE [None]
  - HYPERSOMNIA [None]
  - INSOMNIA [None]
